FAERS Safety Report 8026791 (Version 2)
Quarter: 2012Q4

REPORT INFORMATION
  Report Type: Report from Study
  Country: JP (occurrence: JP)
  Receive Date: 20110708
  Receipt Date: 20120920
  Transmission Date: 20130627
  Serious: Yes (Death, Hospitalization, Other)
  Sender: FDA-Public Use
  Company Number: JP-GENZYME-THYM-1002577

PATIENT
  Age: 7 Year
  Sex: Female
  Weight: 14 kg

DRUGS (15)
  1. THYMOGLOBULIN [Suspect]
     Indication: BONE MARROW CONDITIONING REGIMEN
     Dosage: 17 mg, qd
     Route: 042
     Dates: start: 20100607, end: 20100610
  2. VORICONAZOLE [Concomitant]
     Indication: BRONCHOPULMONARY ASPERGILLOSIS
     Dosage: UNK
     Route: 065
     Dates: start: 20100219, end: 20100719
  3. CEFOZOPRAN HYDROCHLORIDE [Concomitant]
     Indication: INFECTION PROPHYLAXIS
     Dosage: UNK
     Route: 065
     Dates: start: 20100605, end: 20100613
  4. ACICLOVIR [Concomitant]
     Indication: INFECTION PROPHYLAXIS
     Dosage: UNK
     Route: 065
     Dates: start: 20100607, end: 20100719
  5. METHYLPREDNISOLONE SODIUM SUCCINATE [Concomitant]
     Indication: PREMEDICATION
     Dosage: UNK
     Route: 065
     Dates: start: 20100607, end: 20100615
  6. POLYETHYLENE GLYCOL TREATED HUMAN NORMAL IMMUNOGLOBULIN [Concomitant]
     Indication: INFECTION PROPHYLAXIS
     Dosage: UNK
     Route: 065
     Dates: start: 20100608, end: 20100719
  7. RAMOSETRON HYDROCHLORIDE [Concomitant]
     Indication: PROPHYLAXIS OF NAUSEA AND VOMITING
     Dosage: UNK
     Route: 065
     Dates: start: 20100609, end: 20100614
  8. ETOPOSIDE [Concomitant]
     Indication: BONE MARROW CONDITIONING REGIMEN
     Dosage: UNK
     Route: 065
     Dates: start: 20100611, end: 20100613
  9. MELPHALAN [Concomitant]
     Indication: BONE MARROW CONDITIONING REGIMEN
     Dosage: UNK
     Route: 065
     Dates: start: 20100611, end: 20100615
  10. FAMOTIDINE [Concomitant]
     Indication: PROPHYLAXIS AGAINST GASTROINTESTINAL ULCER
     Dosage: UNK
     Route: 065
     Dates: start: 20100612, end: 20100719
  11. METHOTREXATE [Concomitant]
     Indication: PROPHYLAXIS AGAINST GRAFT VERSUS HOST DISEASE
     Dosage: UNK
     Route: 065
     Dates: start: 20100616, end: 20100621
  12. TACROLIMUS [Concomitant]
     Indication: PROPHYLAXIS AGAINST GRAFT VERSUS HOST DISEASE
     Dosage: UNK
     Route: 065
     Dates: start: 20100615, end: 20100622
  13. LENOGRASTIM [Concomitant]
     Indication: SHWACHMAN-DIAMOND SYNDROME
     Dosage: UNK
     Route: 065
     Dates: start: 20100620, end: 20100713
  14. PREDNISOLONE SODIUM SUCCINATE [Concomitant]
     Indication: PROPHYLAXIS AGAINST GRAFT VERSUS HOST DISEASE
     Dosage: UNK
     Route: 065
     Dates: start: 20100628, end: 20100719
  15. DALTEPARIN SODIUM [Concomitant]
     Indication: VENOOCCLUSIVE DISEASE
     Dosage: UNK
     Route: 065
     Dates: start: 20100606, end: 20100719

REACTIONS (6)
  - Febrile neutropenia [Fatal]
  - Graft versus host disease in liver [Unknown]
  - Graft versus host disease in intestine [Unknown]
  - Renal failure acute [Fatal]
  - Abdominal pain [Fatal]
  - Disseminated intravascular coagulation [Recovered/Resolved]
